FAERS Safety Report 7119851-8 (Version None)
Quarter: 2010Q4

REPORT INFORMATION
  Report Type: 
  Country: None (occurrence: None)
  Receive Date: 20101123
  Receipt Date: 20100910
  Transmission Date: 20110411
  Serious: No
  Sender: FDA-Public Use
  Company Number: US-BRISTOL-MYERS SQUIBB COMPANY-15280852

PATIENT
  Age: 75 Year
  Sex: Male

DRUGS (17)
  1. ONGLYZA [Suspect]
     Dosage: 60 DAYS AGO
     Dates: start: 20100101
  2. METFORMIN HCL [Concomitant]
  3. NOVOLIN N [Concomitant]
  4. SINGULAIR [Concomitant]
  5. PRAVASTATIN SODIUM [Concomitant]
  6. CARVEDILOL [Concomitant]
  7. ENALAPRIL MALEATE [Concomitant]
  8. MULTI-VITAMIN [Concomitant]
  9. ASPIRIN [Concomitant]
  10. IBUPROFEN [Concomitant]
  11. OXYGEN [Concomitant]
  12. ALBUTEROL [Concomitant]
     Dosage: 1 DF= 1 PUFF.
     Route: 055
  13. POTASSIUM CHLORIDE [Concomitant]
  14. FUROSEMIDE [Concomitant]
  15. TRAZODONE HCL [Concomitant]
     Dosage: TRAZADONE 50MG AT BED TIME.
  16. AVODART [Concomitant]
  17. ATIVAN [Concomitant]

REACTIONS (1)
  - BLOOD GLUCOSE ABNORMAL [None]
